FAERS Safety Report 12779923 (Version 3)
Quarter: 2016Q4

REPORT INFORMATION
  Report Type: Spontaneous
  Country: US (occurrence: US)
  Receive Date: 20160926
  Receipt Date: 20161005
  Transmission Date: 20170207
  Serious: No
  Sender: FDA-Public Use
  Company Number: US-PFIZER INC-2016447885

PATIENT
  Age: 57 Year
  Sex: Female
  Weight: 90.7 kg

DRUGS (5)
  1. OMEPRAZOLE. [Concomitant]
     Active Substance: OMEPRAZOLE
     Indication: ACID BASE BALANCE
     Dosage: 20 MG, 2X/DAY
     Dates: start: 2011
  2. HYDROXYCHLOROQUINE [Concomitant]
     Active Substance: HYDROXYCHLOROQUINE
     Indication: AUTOIMMUNE DISORDER
     Dosage: 200 MG, UNK
     Dates: start: 2015
  3. LYRICA [Suspect]
     Active Substance: PREGABALIN
     Indication: FIBROMYALGIA
  4. LYRICA [Suspect]
     Active Substance: PREGABALIN
     Indication: SYSTEMIC LUPUS ERYTHEMATOSUS
     Dosage: 100 MG, 3X/DAY
     Route: 048
     Dates: start: 2015, end: 20160922
  5. FUROSEMIDE. [Concomitant]
     Active Substance: FUROSEMIDE
     Indication: OEDEMA
     Dosage: 20 MG, 1X/DAY

REACTIONS (17)
  - Withdrawal syndrome [Recovering/Resolving]
  - Nervousness [Not Recovered/Not Resolved]
  - Fear [Not Recovered/Not Resolved]
  - Sleep disorder [Unknown]
  - Palpitations [Recovered/Resolved]
  - Nausea [Unknown]
  - Exposure to noise [Unknown]
  - Activities of daily living impaired [Not Recovered/Not Resolved]
  - Memory impairment [Unknown]
  - Abnormal behaviour [Unknown]
  - Anxiety [Unknown]
  - Agitation [Not Recovered/Not Resolved]
  - Dysphagia [Unknown]
  - Abdominal discomfort [Unknown]
  - Dyspepsia [Unknown]
  - Feeling abnormal [Not Recovered/Not Resolved]
  - Tinnitus [Unknown]

NARRATIVE: CASE EVENT DATE: 20160923
